FAERS Safety Report 12569516 (Version 1)
Quarter: 2016Q3

REPORT INFORMATION
  Report Type: Report from Study
  Country: BR (occurrence: BR)
  Receive Date: 20160719
  Receipt Date: 20160719
  Transmission Date: 20161109
  Serious: Yes (Hospitalization)
  Sender: FDA-Public Use
  Company Number: BR-BIOGEN-2016BI00264981

PATIENT
  Age: 18 Year
  Sex: Female

DRUGS (7)
  1. LEVOTHYROXINE. [Concomitant]
     Active Substance: LEVOTHYROXINE
     Indication: LIVER DISORDER
     Route: 065
  2. LEVOTHYROXINE. [Concomitant]
     Active Substance: LEVOTHYROXINE
     Indication: METABOLIC SYNDROME
  3. GLIFAGE (METFORMIN HYDROCHLORIDE) [Concomitant]
     Indication: LIVER DISORDER
     Route: 065
  4. GLIFAGE (METFORMIN HYDROCHLORIDE) [Concomitant]
     Indication: METABOLIC SYNDROME
  5. TECFIDERA [Suspect]
     Active Substance: DIMETHYL FUMARATE
     Indication: MULTIPLE SCLEROSIS
     Route: 065
     Dates: start: 201604
  6. LIPLESS (CIPROFIBRATE) [Concomitant]
     Indication: LIVER DISORDER
     Route: 065
  7. LIPLESS (CIPROFIBRATE) [Concomitant]
     Indication: METABOLIC SYNDROME

REACTIONS (2)
  - Multiple sclerosis relapse [Unknown]
  - Drug administered to patient of inappropriate age [Recovered/Resolved]

NARRATIVE: CASE EVENT DATE: 20160706
